FAERS Safety Report 11916330 (Version 2)
Quarter: 2017Q1

REPORT INFORMATION
  Report Type: Spontaneous
  Country: US (occurrence: US)
  Receive Date: 20160114
  Receipt Date: 20170120
  Transmission Date: 20170428
  Serious: Yes (Hospitalization)
  Sender: FDA-Public Use
  Company Number: US-WEST-WARD PHARMACEUTICALS CORP.-US-H14001-16-00091

PATIENT
  Sex: Male

DRUGS (18)
  1. METHOTREXATE. [Suspect]
     Active Substance: METHOTREXATE
     Route: 065
     Dates: start: 20150930
  2. METHOTREXATE. [Suspect]
     Active Substance: METHOTREXATE
     Indication: ACUTE LYMPHOCYTIC LEUKAEMIA REFRACTORY
     Route: 065
     Dates: start: 201407, end: 201412
  3. BLINATUMOMAB [Suspect]
     Active Substance: BLINATUMOMAB
     Indication: ACUTE LYMPHOCYTIC LEUKAEMIA REFRACTORY
     Route: 065
     Dates: start: 201505, end: 201508
  4. CYTARABINE. [Suspect]
     Active Substance: CYTARABINE
     Indication: ACUTE LYMPHOCYTIC LEUKAEMIA REFRACTORY
     Route: 065
     Dates: start: 201407, end: 201412
  5. VINCRISTINE [Suspect]
     Active Substance: VINCRISTINE
     Route: 065
     Dates: end: 201412
  6. CYTARABINE. [Suspect]
     Active Substance: CYTARABINE
     Route: 065
     Dates: start: 20150918
  7. ASPARAGINASE [Suspect]
     Active Substance: ASPARAGINASE
     Indication: ACUTE LYMPHOCYTIC LEUKAEMIA REFRACTORY
     Route: 065
     Dates: start: 20150930
  8. CYCLOPHOSPHAMIDE. [Suspect]
     Active Substance: CYCLOPHOSPHAMIDE
     Route: 065
  9. PREDNISONE. [Suspect]
     Active Substance: PREDNISONE
     Indication: ACUTE LYMPHOCYTIC LEUKAEMIA REFRACTORY
     Route: 065
     Dates: start: 20150930
  10. DEXAMETHASONE. [Suspect]
     Active Substance: DEXAMETHASONE
     Indication: ACUTE LYMPHOCYTIC LEUKAEMIA REFRACTORY
     Route: 065
     Dates: start: 201407, end: 201412
  11. VINCRISTINE [Suspect]
     Active Substance: VINCRISTINE
     Route: 065
     Dates: start: 20150930
  12. ETOPOSIDE. [Suspect]
     Active Substance: ETOPOSIDE
     Indication: ACUTE LYMPHOCYTIC LEUKAEMIA REFRACTORY
     Route: 065
     Dates: start: 20150918
  13. CYCLOPHOSPHAMIDE. [Suspect]
     Active Substance: CYCLOPHOSPHAMIDE
     Indication: ACUTE LYMPHOCYTIC LEUKAEMIA REFRACTORY
     Route: 065
     Dates: start: 201407, end: 201412
  14. DEXAMETHASONE. [Suspect]
     Active Substance: DEXAMETHASONE
     Route: 065
  15. DOXORUBICIN [Suspect]
     Active Substance: DOXORUBICIN
     Indication: ACUTE LYMPHOCYTIC LEUKAEMIA REFRACTORY
     Route: 065
     Dates: start: 201407, end: 201412
  16. DOXORUBICIN [Suspect]
     Active Substance: DOXORUBICIN
     Route: 065
  17. RITUXIMAB [Suspect]
     Active Substance: RITUXIMAB
     Indication: ACUTE LYMPHOCYTIC LEUKAEMIA REFRACTORY
     Route: 065
     Dates: start: 201407, end: 201412
  18. VINCRISTINE [Suspect]
     Active Substance: VINCRISTINE
     Indication: ACUTE LYMPHOCYTIC LEUKAEMIA REFRACTORY
     Route: 065
     Dates: start: 201407, end: 201412

REACTIONS (8)
  - Pneumonia fungal [Unknown]
  - Nausea [Not Recovered/Not Resolved]
  - Coagulopathy [Recovering/Resolving]
  - Blood glucose increased [Unknown]
  - Escherichia sepsis [Unknown]
  - Jaundice [Unknown]
  - Meningitis staphylococcal [Unknown]
  - Vomiting [Recovered/Resolved]

NARRATIVE: CASE EVENT DATE: 2014
